FAERS Safety Report 6808841-8 (Version None)
Quarter: 2010Q2

REPORT INFORMATION
  Report Type: 
  Country: None (occurrence: None)
  Receive Date: 20100630
  Receipt Date: 20090925
  Transmission Date: 20101027
  Serious: No
  Sender: FDA-Public Use
  Company Number: US-PFIZER INC-2009254579

PATIENT
  Sex: Male
  Weight: 64.863 kg

DRUGS (2)
  1. XANAX XR [Suspect]
     Indication: ANXIETY
     Dates: start: 20060101
  2. XANAX XR [Suspect]
     Indication: PANIC ATTACK

REACTIONS (3)
  - ANXIETY [None]
  - MEDICATION RESIDUE [None]
  - PANIC ATTACK [None]
